FAERS Safety Report 7089309-3 (Version None)
Quarter: 2010Q4

REPORT INFORMATION
  Report Type: 
  Country: None (occurrence: None)
  Receive Date: 20101108
  Receipt Date: 20101105
  Transmission Date: 20110411
  Serious: Yes (Hospitalization)
  Sender: FDA-Public Use
  Company Number: US-CEPHALON-2010005771

PATIENT
  Sex: Male
  Weight: 92 kg

DRUGS (17)
  1. TREANDA [Suspect]
     Indication: DIFFUSE LARGE B-CELL LYMPHOMA
     Route: 042
     Dates: start: 20101103, end: 20101103
  2. RITUXAN [Suspect]
     Indication: DIFFUSE LARGE B-CELL LYMPHOMA
     Route: 042
     Dates: start: 20101026, end: 20101026
  3. ALLOPURINOL [Concomitant]
  4. LOSARTAN [Concomitant]
     Dates: end: 20101001
  5. FUROSEMIDE [Concomitant]
     Dates: end: 20101001
  6. FUROSEMIDE [Concomitant]
     Dates: start: 20101001
  7. SULFAMETHOXAZOLE AND TRIMETHOPRIM DOUBLE STRENGTH [Concomitant]
     Dates: end: 20101001
  8. SULFAMETHOXAZOLE AND TRIMETHOPRIM DOUBLE STRENGTH [Concomitant]
     Dates: start: 20101101
  9. FOLIC ACID [Concomitant]
  10. LEVETIRACETAM [Concomitant]
  11. ONDANSETRON HCL [Concomitant]
  12. CLONIDINE [Concomitant]
  13. FLUCONAZOLE [Concomitant]
  14. VALACYCLOVIR [Concomitant]
  15. CENTRUM SILVER [Concomitant]
  16. PROAIR HFA [Concomitant]
  17. PROPOXYPH-ACETAMINOPHEN [Concomitant]

REACTIONS (2)
  - HYPERKALAEMIA [None]
  - TUMOUR LYSIS SYNDROME [None]
